FAERS Safety Report 10535043 (Version 1)
Quarter: 2014Q4

REPORT INFORMATION
  Report Type: Spontaneous
  Country: US (occurrence: US)
  Receive Date: 20141022
  Receipt Date: 20141022
  Transmission Date: 20150529
  Serious: No
  Sender: FDA-Public Use
  Company Number: US-ASTRAZENECA-2014SE12958

PATIENT
  Age: 72 Year
  Sex: Female
  Weight: 76.7 kg

DRUGS (3)
  1. CRESTOR [Suspect]
     Active Substance: ROSUVASTATIN CALCIUM
     Indication: BLOOD CHOLESTEROL ABNORMAL
     Route: 048
     Dates: start: 2014, end: 2014
  2. SO MANY MEDICATIONS [Concomitant]
  3. CRESTOR [Suspect]
     Active Substance: ROSUVASTATIN CALCIUM
     Indication: BLOOD CHOLESTEROL ABNORMAL
     Dosage: HALF OF 10 MG TABLET HS
     Route: 048
     Dates: start: 2014, end: 2014

REACTIONS (3)
  - Off label use [Unknown]
  - Dyspepsia [Unknown]
  - Abdominal pain upper [Unknown]
